FAERS Safety Report 22194817 (Version 1)
Quarter: 2023Q2

REPORT INFORMATION
  Report Type: Spontaneous
  Country: PL (occurrence: PL)
  Receive Date: 20230411
  Receipt Date: 20230411
  Transmission Date: 20230721
  Serious: Yes (Other)
  Sender: FDA-Public Use
  Company Number: PL-002147023-NVSC2023PL067740

PATIENT
  Age: 63 Year
  Sex: Female

DRUGS (5)
  1. PANTOPRAZOLE [Suspect]
     Active Substance: PANTOPRAZOLE
     Indication: Product used for unknown indication
     Dosage: UNK
     Route: 065
  2. PREGABALIN [Suspect]
     Active Substance: PREGABALIN
     Indication: Product used for unknown indication
     Dosage: UNK
     Route: 065
  3. RIBOCICLIB [Suspect]
     Active Substance: RIBOCICLIB
     Indication: Bone cancer
     Dosage: UNK
     Route: 065
     Dates: start: 20211013
  4. RIBOCICLIB [Suspect]
     Active Substance: RIBOCICLIB
     Dosage: 400 MG, QD
     Route: 065
  5. ZOLEDRONIC ACID [Suspect]
     Active Substance: ZOLEDRONIC ACID
     Indication: Product used for unknown indication
     Dosage: UNK
     Route: 065
     Dates: start: 20211013

REACTIONS (8)
  - Hepatic cancer [Unknown]
  - Breast cancer [Unknown]
  - Metastases to liver [Unknown]
  - Malignant neoplasm progression [Unknown]
  - Bone cancer [Unknown]
  - Alanine aminotransferase increased [Recovered/Resolved]
  - Aspartate aminotransferase increased [Recovered/Resolved]
  - Toxicity to various agents [Unknown]

NARRATIVE: CASE EVENT DATE: 20211110
